FAERS Safety Report 7773114-6 (Version None)
Quarter: 2011Q3

REPORT INFORMATION
  Report Type: 
  Country: None (occurrence: None)
  Receive Date: 20110922
  Receipt Date: 20110413
  Transmission Date: 20111222
  Serious: Yes (Other)
  Sender: FDA-Public Use
  Company Number: US-ASTRAZENECA-2009UW17565

PATIENT
  Age: 37 Year
  Sex: Female
  Weight: 149.7 kg

DRUGS (13)
  1. LYRICA [Concomitant]
     Dates: start: 20090202
  2. AMBIEN [Concomitant]
     Dates: start: 20090202
  3. MERIDIA [Concomitant]
     Indication: WEIGHT DECREASED
  4. KLONOPIN [Concomitant]
     Dates: end: 20070125
  5. NAPROSYN [Concomitant]
     Dates: start: 20060117
  6. ATIVAN [Concomitant]
     Dates: start: 20070125
  7. KLONOPIN [Concomitant]
     Indication: ANXIETY
     Dates: start: 20050101
  8. TOPAMAX [Concomitant]
     Dates: start: 20060922
  9. SEROQUEL [Suspect]
     Dosage: 300 MG - 400 MG
     Route: 048
     Dates: start: 20040101
  10. DIOVAN [Concomitant]
     Dates: start: 20090202
  11. FENTANYL [Concomitant]
     Dates: start: 20090202
  12. SEROQUEL [Suspect]
     Indication: INSOMNIA
     Route: 048
     Dates: start: 19990101
  13. WELLBUTRIN [Concomitant]
     Dates: start: 20050101

REACTIONS (7)
  - PANCREATITIS [None]
  - HYPERLIPIDAEMIA [None]
  - ASTHMA [None]
  - BLOOD CHOLESTEROL INCREASED [None]
  - TYPE 2 DIABETES MELLITUS [None]
  - OSTEOARTHRITIS [None]
  - WEIGHT INCREASED [None]
